FAERS Safety Report 4387743-3 (Version None)
Quarter: 2004Q2

REPORT INFORMATION
  Report Type: 
  Country: None (occurrence: None)
  Receive Date: 20040625
  Receipt Date: 20040121
  Transmission Date: 20050107
  Serious: Yes (Other)
  Sender: FDA-Public Use
  Company Number: 200405040

PATIENT
  Age: 97 Year
  Sex: Female

DRUGS (3)
  1. ALPHAGAN [Suspect]
     Indication: GLAUCOMA
  2. ALPHAGAN P [Suspect]
     Indication: GLAUCOMA
  3. TRAMAL [Concomitant]

REACTIONS (2)
  - CONVULSION [None]
  - EYE IRRITATION [None]
